FAERS Safety Report 4322937-4 (Version None)
Quarter: 2004Q1

REPORT INFORMATION
  Report Type: 
  Country: None (occurrence: None)
  Receive Date: 20040325
  Receipt Date: 20040322
  Transmission Date: 20041129
  Serious: Yes (Death, Hospitalization)
  Sender: FDA-Public Use
  Company Number: 200410945EU

PATIENT
  Age: 31 Year
  Sex: Female

DRUGS (9)
  1. TAXOTERE [Suspect]
     Indication: BREAST CANCER
     Route: 042
     Dates: start: 20030918, end: 20031015
  2. HERCEPTIN [Suspect]
     Indication: BREAST CANCER
     Route: 042
     Dates: start: 20030918, end: 20031015
  3. STILNOCT [Concomitant]
  4. ZOLOFT [Concomitant]
  5. ACETAMINOPHEN [Concomitant]
  6. BETAPRED [Concomitant]
  7. TAVEGYL [Concomitant]
  8. ZYRLEX [Concomitant]
  9. NAPROSYN [Concomitant]

REACTIONS (9)
  - ARTHRALGIA [None]
  - BLOOD PRESSURE DECREASED [None]
  - CARDIO-RESPIRATORY ARREST [None]
  - CYANOSIS [None]
  - DEPRESSED LEVEL OF CONSCIOUSNESS [None]
  - DISSEMINATED INTRAVASCULAR COAGULATION [None]
  - PAIN [None]
  - RESPIRATORY DISORDER [None]
  - TACHYCARDIA [None]
